FAERS Safety Report 12309211 (Version 1)
Quarter: 2016Q2

REPORT INFORMATION
  Report Type: Spontaneous
  Country: US (occurrence: None)
  Receive Date: 20160426
  Receipt Date: 20160426
  Transmission Date: 20160815
  Serious: Yes (Disabling)
  Sender: FDA-Public Use
  Company Number: None

PATIENT
  Age: 79 Year
  Sex: Female
  Weight: 96.16 kg

DRUGS (1)
  1. BOTOX [Suspect]
     Active Substance: ONABOTULINUMTOXINA
     Indication: URINARY INCONTINENCE
     Dosage: IN THE MUSCLE
     Route: 030
     Dates: start: 20160422, end: 20160422

REACTIONS (2)
  - Headache [None]
  - Vision blurred [None]

NARRATIVE: CASE EVENT DATE: 20160425
